FAERS Safety Report 7544876-8 (Version None)
Quarter: 2011Q2

REPORT INFORMATION
  Report Type: 
  Country: None (occurrence: None)
  Receive Date: 20110614
  Receipt Date: 20100110
  Transmission Date: 20111010
  Serious: Yes (Death, Hospitalization, Other)
  Sender: FDA-Public Use
  Company Number: US-BAYER-201010289NA

PATIENT
  Age: 45 Year
  Sex: Female
  Weight: 101.59 kg

DRUGS (14)
  1. PRAVACHOL [Concomitant]
  2. RED BLOOD CELLS [Concomitant]
     Dosage: 2 U, UNK
     Dates: start: 20010306
  3. TRASYLOL [Suspect]
     Indication: CORONARY ARTERY BYPASS
     Dosage: 1 ML, 200 ML, 50 ML/HOUR
     Dates: start: 20010306, end: 20010306
  4. TRASYLOL [Suspect]
     Indication: STERNOTOMY
     Dosage: 1 ML, 30 ML/HR INFUSION
     Dates: start: 20010926
  5. COZAAR [Concomitant]
     Dosage: 50 MG, UNK
     Route: 048
  6. CEFAZOLIN [Concomitant]
     Dosage: 1.5 GRAMS
     Route: 042
     Dates: start: 20010306
  7. LASIX [Concomitant]
     Dosage: 40 MG 2 TABLETS
     Route: 048
  8. ZAROXOLYN [Concomitant]
  9. NIFEDIPINE [Concomitant]
     Dosage: 30 MG, UNK
  10. ACETYLSALICYLIC ACID SRT [Concomitant]
     Dosage: 1 TABLET DAILY
     Route: 048
  11. BENADRYL [Concomitant]
     Dosage: 25 MG, UNK
     Route: 042
     Dates: start: 20010306
  12. TRASYLOL [Suspect]
     Indication: POSTOPERATIVE THORACIC PROCEDURE COMPLICATION
  13. METOPROLOL SUCCINATE [Concomitant]
     Dosage: 50 MG EVERY 12 HOURS
     Route: 048
  14. ALBUTEROL SULFATE AUTOHALER [Concomitant]
     Dosage: INHALER

REACTIONS (14)
  - UNEVALUABLE EVENT [None]
  - DEPRESSION [None]
  - MENTAL DISORDER [None]
  - RENAL INJURY [None]
  - DEATH [None]
  - CEREBROVASCULAR ACCIDENT [None]
  - MYOCARDIAL INFARCTION [None]
  - ANHEDONIA [None]
  - INJURY [None]
  - HEART INJURY [None]
  - FEAR [None]
  - ANXIETY [None]
  - RENAL FAILURE [None]
  - PAIN [None]
